FAERS Safety Report 4338186-X (Version None)
Quarter: 2004Q2

REPORT INFORMATION
  Report Type: 
  Country: None (occurrence: None)
  Receive Date: 20040413
  Receipt Date: 20040413
  Transmission Date: 20050107
  Serious: Yes (Disabling, Other)
  Sender: FDA-Public Use
  Company Number: None

PATIENT
  Age: 29 Year
  Sex: Female
  Weight: 92.9874 kg

DRUGS (2)
  1. EFFEXOR XR [Suspect]
     Indication: ANXIETY
     Dosage: 75 MG ORAL DAY
     Route: 048
     Dates: start: 20020601, end: 20040329
  2. EFFEXOR XR [Suspect]
     Indication: PANIC DISORDER
     Dosage: 75 MG ORAL DAY
     Route: 048
     Dates: start: 20020601, end: 20040329

REACTIONS (8)
  - ASTHENIA [None]
  - CRYING [None]
  - DRUG WITHDRAWAL SYNDROME [None]
  - FEELING HOT AND COLD [None]
  - INFLUENZA LIKE ILLNESS [None]
  - LETHARGY [None]
  - MUSCLE TIGHTNESS [None]
  - MYALGIA [None]
